FAERS Safety Report 10231354 (Version 2)
Quarter: 2014Q2

REPORT INFORMATION
  Report Type: Spontaneous
  Country: US (occurrence: US)
  Receive Date: 20140611
  Receipt Date: 20140611
  Transmission Date: 20141212
  Serious: Yes (Other)
  Sender: FDA-Public Use
  Company Number: US-FRI-1000039496

PATIENT
  Age: 64 Year
  Sex: Female
  Weight: 69.3 kg

DRUGS (11)
  1. BYSTOLIC [Suspect]
     Indication: HYPERTENSION
     Dosage: 2.5MG
     Route: 048
     Dates: start: 200910, end: 2009
  2. BYSTOLIC [Suspect]
     Indication: HYPERTENSION
     Dosage: 5MG
     Route: 048
     Dates: start: 2009, end: 2011
  3. BYSTOLIC [Suspect]
     Dosage: 2.5MG
     Route: 048
     Dates: start: 2011, end: 20121030
  4. BYSTOLIC [Suspect]
     Dosage: 2.5MG
     Route: 048
     Dates: start: 201211
  5. PROGESTERONE [Concomitant]
     Indication: HORMONE REPLACEMENT THERAPY
  6. ESTROGEN [Concomitant]
     Indication: HORMONE REPLACEMENT THERAPY
  7. VITAMIN B [Concomitant]
  8. PANCREATIN [Concomitant]
     Indication: DYSPEPSIA
  9. LOVASTATIN [Concomitant]
     Dosage: 10MG
  10. COZAAR [Concomitant]
     Dosage: 100MG
  11. BENTYL [Concomitant]
     Dosage: 20MG

REACTIONS (7)
  - Hyperthyroidism [Recovered/Resolved]
  - Blood pressure decreased [Recovered/Resolved]
  - Heart rate increased [Recovered/Resolved]
  - Anxiety [Recovered/Resolved]
  - Palpitations [Recovered/Resolved]
  - Cough [Recovered/Resolved]
  - Lymphocyte count increased [Not Recovered/Not Resolved]
